FAERS Safety Report 24929149 (Version 1)
Quarter: 2025Q1

REPORT INFORMATION
  Report Type: Spontaneous
  Country: FR (occurrence: FR)
  Receive Date: 20250205
  Receipt Date: 20250205
  Transmission Date: 20250409
  Serious: Yes (Hospitalization, Other)
  Sender: ALEXION PHARMACEUTICALS
  Company Number: FR-SA-2024SA380881

PATIENT
  Age: 1 Month
  Weight: 4.8 kg

DRUGS (1)
  1. NIRSEVIMAB [Suspect]
     Active Substance: NIRSEVIMAB
     Route: 065

REACTIONS (6)
  - Respiratory syncytial virus bronchiolitis [Unknown]
  - Cough [Unknown]
  - Respiratory syncytial virus infection [Unknown]
  - Decreased appetite [Unknown]
  - Respiratory disorder [Unknown]
  - Rhinitis [Unknown]
